FAERS Safety Report 12796693 (Version 3)
Quarter: 2017Q1

REPORT INFORMATION
  Report Type: Spontaneous
  Country: VE (occurrence: VE)
  Receive Date: 20160929
  Receipt Date: 20170331
  Transmission Date: 20170428
  Serious: Yes (Other)
  Sender: FDA-Public Use
  Company Number: PHHY2014VE023147

PATIENT
  Age: 48 Year
  Sex: Female

DRUGS (18)
  1. TAFIL [Concomitant]
     Active Substance: ALPRAZOLAM
     Indication: PRODUCT USED FOR UNKNOWN INDICATION
     Route: 065
  2. ANAFRANIL [Suspect]
     Active Substance: CLOMIPRAMINE HYDROCHLORIDE
     Indication: COMPULSIONS
     Dosage: 50 MG, QD
     Route: 048
     Dates: start: 201308
  3. ANAFRANIL [Suspect]
     Active Substance: CLOMIPRAMINE HYDROCHLORIDE
     Indication: ANXIETY
     Dosage: 25 MG, QD
     Route: 048
  4. ANAFRANIL [Suspect]
     Active Substance: CLOMIPRAMINE HYDROCHLORIDE
     Indication: DEPRESSION
     Dosage: UNK
     Route: 048
     Dates: start: 2014
  5. BROMAZEPAM [Concomitant]
     Active Substance: BROMAZEPAM
     Indication: PRODUCT USED FOR UNKNOWN INDICATION
     Route: 065
  6. ANAFRANIL [Suspect]
     Active Substance: CLOMIPRAMINE HYDROCHLORIDE
     Indication: INSOMNIA
     Dosage: 5 DF, UNK (SIMULTANEOUSLY)
     Route: 048
  7. CLONAZEPAM. [Concomitant]
     Active Substance: CLONAZEPAM
     Indication: ANXIETY
     Dosage: 1 MG, QD
     Route: 065
  8. ANAFRANIL [Suspect]
     Active Substance: CLOMIPRAMINE HYDROCHLORIDE
     Dosage: 0.5 DF (HALF OF ANAFRANIL 75 MG), QD
     Route: 048
  9. CLONAZEPAM. [Concomitant]
     Active Substance: CLONAZEPAM
     Indication: DEPRESSION
  10. ANAFRANIL [Suspect]
     Active Substance: CLOMIPRAMINE HYDROCHLORIDE
     Indication: INSOMNIA
     Dosage: 25 MG/ML, UNK (AS REPORTED)
     Route: 048
  11. ALPRAZOLAM. [Suspect]
     Active Substance: ALPRAZOLAM
     Dosage: 2 MG, QD
     Route: 065
     Dates: start: 20160503
  12. OMEGA 3-6-9 [Concomitant]
     Active Substance: FISH OIL
     Indication: EYE LUBRICATION THERAPY
     Route: 065
  13. ANAFRANIL [Suspect]
     Active Substance: CLOMIPRAMINE HYDROCHLORIDE
     Indication: DEPRESSION
     Dosage: 25 MG (ANAFRANIL 25 MG), QD
     Route: 048
     Dates: start: 201202
  14. ALPRAZOLAM. [Suspect]
     Active Substance: ALPRAZOLAM
     Indication: INSOMNIA
     Dosage: 2 MG, QD
     Route: 065
     Dates: start: 201202
  15. ANAFRANIL [Suspect]
     Active Substance: CLOMIPRAMINE HYDROCHLORIDE
     Dosage: 25 MG, QD
     Route: 048
     Dates: start: 201502, end: 20151204
  16. SYSTANE ULTRA [Suspect]
     Active Substance: POLYETHYLENE GLYCOL 400\PROPYLENE GLYCOL
     Indication: DRY EYE
     Dosage: TID (3 DROPS RIGHT EYE 2 LEFT, AND EVENING 2 DROPS IN RIGHT EYE AND 1 ON LEFT. BEFORE SLEEP 2 DROPS
     Route: 047
  17. KETOPROFENO [Concomitant]
     Indication: HEADACHE
     Dosage: 40 MG, QD
     Route: 065
  18. RIVOTRIL [Concomitant]
     Active Substance: CLONAZEPAM
     Indication: PRODUCT USED FOR UNKNOWN INDICATION
     Dosage: 0.5 MG, UNK (OCASIONALLY)
     Route: 048
     Dates: start: 2013

REACTIONS (41)
  - Suicidal ideation [Unknown]
  - Toxicity to various agents [Not Recovered/Not Resolved]
  - Drug intolerance [Not Recovered/Not Resolved]
  - Gastritis [Not Recovered/Not Resolved]
  - Abdominal distension [Recovering/Resolving]
  - Wrong technique in product usage process [Unknown]
  - Intestinal congestion [Unknown]
  - Insomnia [Unknown]
  - Headache [Recovering/Resolving]
  - Memory impairment [Not Recovered/Not Resolved]
  - Restlessness [Recovering/Resolving]
  - Drug ineffective for unapproved indication [Unknown]
  - Abasia [Unknown]
  - Mental impairment [Not Recovered/Not Resolved]
  - Feeling abnormal [Unknown]
  - Pain [Not Recovered/Not Resolved]
  - Epigastric discomfort [Not Recovered/Not Resolved]
  - Malaise [Not Recovered/Not Resolved]
  - Incorrect route of drug administration [Unknown]
  - Product use issue [Unknown]
  - Drug ineffective [Not Recovered/Not Resolved]
  - Disturbance in attention [Unknown]
  - Nervousness [Not Recovered/Not Resolved]
  - Somnolence [Unknown]
  - Nausea [Not Recovered/Not Resolved]
  - Weight increased [Unknown]
  - Dyspnoea [Unknown]
  - Sleep disorder [Not Recovered/Not Resolved]
  - Breast swelling [Unknown]
  - Movement disorder [Not Recovered/Not Resolved]
  - Oesophageal discomfort [Unknown]
  - Dizziness [Recovering/Resolving]
  - Insomnia [Recovered/Resolved]
  - Drug dependence [Not Recovered/Not Resolved]
  - Eye disorder [Unknown]
  - Stress [Unknown]
  - Amnesia [Recovering/Resolving]
  - General physical health deterioration [Not Recovered/Not Resolved]
  - Mental disorder [Not Recovered/Not Resolved]
  - Constipation [Unknown]
  - Depression [Unknown]

NARRATIVE: CASE EVENT DATE: 201202
